FAERS Safety Report 9506162 (Version 1)
Quarter: 2013Q1

REPORT INFORMATION
  Report Type: Spontaneous
  Country: US (occurrence: None)
  Receive Date: 20130304
  Receipt Date: 20130304
  Transmission Date: 20140127
  Serious: Yes (Hospitalization)
  Sender: FDA-Public Use
  Company Number: 2012BAX019999

PATIENT
  Age: 64 Year
  Sex: Male

DRUGS (1)
  1. EXTRANEAL [Suspect]
     Indication: PERITONEAL DIALYSIS
     Dosage: INTRAPERITONEAL

REACTIONS (1)
  - Fungal peritonitis [None]
